FAERS Safety Report 13714031 (Version 1)
Quarter: 2017Q3

REPORT INFORMATION
  Report Type: Spontaneous
  Country: FI (occurrence: FI)
  Receive Date: 20170704
  Receipt Date: 20170704
  Transmission Date: 20171127
  Serious: Yes (Life-Threatening, Hospitalization)
  Sender: FDA-Public Use
  Company Number: FI-SEPTODONT-201704130

PATIENT
  Age: 77 Year
  Sex: Male

DRUGS (7)
  1. AMLODIPINE [Concomitant]
     Active Substance: AMLODIPINE BESYLATE
     Indication: HYPERTENSION
     Route: 048
  2. AMORION [Suspect]
     Active Substance: AMOXICILLIN
     Indication: ENDOCARDITIS PROPHYLAXIS
     Route: 048
     Dates: start: 20170531, end: 20170531
  3. METOPROLOL SUCCINATE. [Concomitant]
     Active Substance: METOPROLOL SUCCINATE
     Indication: HYPERTENSION
     Route: 048
  4. SEPTOCAINE [Suspect]
     Active Substance: ARTICAINE HYDROCHLORIDE\EPINEPHRINE BITARTRATE
     Indication: LOCAL ANAESTHESIA
     Dosage: 3 AMPOULES
     Dates: start: 20170531, end: 20170531
  5. MAREVAN FORTE [Concomitant]
     Active Substance: WARFARIN SODIUM
     Route: 048
  6. SIMVASTATIN. [Concomitant]
     Active Substance: SIMVASTATIN
     Indication: HYPERCHOLESTEROLAEMIA
     Route: 048
  7. TAMBOCOR [Concomitant]
     Active Substance: FLECAINIDE ACETATE
     Indication: ARRHYTHMIA
     Route: 048

REACTIONS (9)
  - Anaphylactic shock [Recovering/Resolving]
  - Erythema [Recovering/Resolving]
  - Hypotension [Recovering/Resolving]
  - Tachycardia [Recovering/Resolving]
  - Ventricular tachycardia [Recovering/Resolving]
  - Confusional state [Recovering/Resolving]
  - Abdominal pain [Recovering/Resolving]
  - Condition aggravated [Recovering/Resolving]
  - Depressed level of consciousness [Recovering/Resolving]

NARRATIVE: CASE EVENT DATE: 20170531
